FAERS Safety Report 12086634 (Version 1)
Quarter: 2016Q1

REPORT INFORMATION
  Report Type: Spontaneous
  Country: US (occurrence: US)
  Receive Date: 20160217
  Receipt Date: 20160217
  Transmission Date: 20160526
  Serious: No
  Sender: FDA-Public Use
  Company Number: US-TAKEDA-2015TUS011136

PATIENT
  Age: 66 Year
  Sex: Male

DRUGS (2)
  1. PREVACID [Suspect]
     Active Substance: LANSOPRAZOLE
     Indication: GASTROOESOPHAGEAL REFLUX DISEASE
     Dosage: 30 MG, QD
     Route: 048
     Dates: start: 2014, end: 20150804
  2. LACTULOSE. [Concomitant]
     Active Substance: LACTULOSE

REACTIONS (5)
  - Feeling abnormal [Recovered/Resolved]
  - Nausea [Recovered/Resolved]
  - Off label use [Recovered/Resolved]
  - Inappropriate schedule of drug administration [Recovered/Resolved]
  - Eyelid ptosis [Recovered/Resolved]

NARRATIVE: CASE EVENT DATE: 2014
